FAERS Safety Report 17950776 (Version 3)
Quarter: 2021Q1

REPORT INFORMATION
  Report Type: Report from Study
  Country: US (occurrence: US)
  Receive Date: 20200626
  Receipt Date: 20210122
  Transmission Date: 20210419
  Serious: Yes (Death, Other)
  Sender: FDA-Public Use
  Company Number: US-ACADIA PHARMACEUTICALS INC.-ACA-2020-PIM-001859

PATIENT
  Age: 81 Year
  Sex: Male
  Weight: 66 kg

DRUGS (7)
  1. NUPLAZID [Suspect]
     Active Substance: PIMAVANSERIN TARTRATE
     Indication: PARKINSON^S DISEASE PSYCHOSIS
     Dosage: 34 MILLIGRAM, QD
     Route: 048
     Dates: end: 202012
  2. CARBIDOPA/LEVODOPA [Concomitant]
     Active Substance: CARBIDOPA\LEVODOPA
     Dosage: TOOK 8 IN A 24?HOUR PERIOD
  3. AZILECT [Concomitant]
     Active Substance: RASAGILINE MESYLATE
     Indication: PRODUCT USED FOR UNKNOWN INDICATION
     Dosage: 1 MILLIGRAM, QD
     Route: 048
  4. NUPLAZID [Suspect]
     Active Substance: PIMAVANSERIN TARTRATE
     Indication: HALLUCINATION
  5. NUPLAZID [Suspect]
     Active Substance: PIMAVANSERIN TARTRATE
     Indication: DELUSION
  6. RASAGILINE. [Concomitant]
     Active Substance: RASAGILINE
     Dosage: UNK, QD
  7. CARBIDOPA/LEVODOPA [Concomitant]
     Active Substance: CARBIDOPA\LEVODOPA
     Indication: PRODUCT USED FOR UNKNOWN INDICATION
     Dosage: 1 TAB EVERY 6 HOURS WHILE AWAKE

REACTIONS (7)
  - Dementia with Lewy bodies [Recovered/Resolved]
  - Dysphagia [Unknown]
  - Hypertension [Unknown]
  - Ill-defined disorder [Recovered/Resolved]
  - Drooling [Recovered/Resolved]
  - Saliva altered [Recovered/Resolved]
  - Foreign body in throat [Unknown]

NARRATIVE: CASE EVENT DATE: 2020
